FAERS Safety Report 4946168-X (Version None)
Quarter: 2006Q1

REPORT INFORMATION
  Report Type: 
  Country: None (occurrence: None)
  Receive Date: 20060118
  Receipt Date: 20050622
  Transmission Date: 20060701
  Serious: Yes (Other)
  Sender: FDA-Public Use
  Company Number: US-JNJFOC-20050601795

PATIENT
  Age: 66 Year
  Sex: Female

DRUGS (3)
  1. DOXIL [Suspect]
     Indication: UTERINE CANCER
     Dosage: SEE IMAGE
     Route: 042
     Dates: start: 20050307, end: 20050404
  2. DOXIL [Suspect]
     Indication: UTERINE CANCER
     Dosage: SEE IMAGE
     Route: 042
     Dates: start: 20040521, end: 20050420
  3. PROCRIT (INJECTION ) ERYTHROPOIETIN [Concomitant]

REACTIONS (2)
  - MALIGNANT NEOPLASM PROGRESSION [None]
  - UTERINE CANCER [None]
